FAERS Safety Report 6448445-2 (Version None)
Quarter: 2009Q4

REPORT INFORMATION
  Report Type: 
  Country: None (occurrence: None)
  Receive Date: 20091120
  Receipt Date: 20091110
  Transmission Date: 20100525
  Serious: Yes (Hospitalization)
  Sender: FDA-Public Use
  Company Number: CA-JNJFOC-20091103197

PATIENT
  Sex: Female
  Weight: 41 kg

DRUGS (13)
  1. REMICADE [Suspect]
     Route: 042
     Dates: start: 20060601
  2. REMICADE [Suspect]
     Indication: CROHN'S DISEASE
     Route: 042
     Dates: start: 20060601
  3. OTHER DRUGS (UNSPECIFIED) [Suspect]
     Indication: DRUG ABUSE
  4. MIRTAZAPINE [Concomitant]
  5. PENTASA [Concomitant]
  6. METHOTREXATE [Concomitant]
  7. ALBUTEROL [Concomitant]
     Route: 055
  8. MIRAPEX [Concomitant]
  9. ALPRAZOLAM [Concomitant]
  10. ALENDRONATE SODIUM [Concomitant]
  11. ADVAIR DISKUS 100/50 [Concomitant]
     Route: 055
  12. FOLIC ACID [Concomitant]
  13. QUETIAPINE [Concomitant]

REACTIONS (5)
  - AGITATION [None]
  - DEPRESSION [None]
  - DISTURBANCE IN SOCIAL BEHAVIOUR [None]
  - DRUG ABUSE [None]
  - DRUG TOXICITY [None]
